FAERS Safety Report 5038056-8 (Version None)
Quarter: 2006Q2

REPORT INFORMATION
  Report Type: 
  Country: None (occurrence: None)
  Receive Date: 20060531
  Receipt Date: 20021122
  Transmission Date: 20061013
  Serious: Yes (Other)
  Sender: FDA-Public Use
  Company Number: CVAT2002US00834

PATIENT
  Sex: 0

DRUGS (1)
  1. VOLTAREN [Suspect]

REACTIONS (1)
  - CORNEAL THINNING [None]
